FAERS Safety Report 7365997-9 (Version None)
Quarter: 2011Q1

REPORT INFORMATION
  Report Type: 
  Country: None (occurrence: None)
  Receive Date: 20110317
  Receipt Date: 20110317
  Transmission Date: 20110831
  Serious: No
  Sender: FDA-Public Use
  Company Number: None

PATIENT
  Age: 56 Year
  Sex: Female
  Weight: 68.0396 kg

DRUGS (1)
  1. CLINDAMYCIN [Suspect]
     Dosage: 150MG 1 T.I.D. ORAL
     Route: 048
     Dates: start: 20110228

REACTIONS (1)
  - OESOPHAGEAL PAIN [None]
